FAERS Safety Report 9796211 (Version 3)
Quarter: 2014Q1

REPORT INFORMATION
  Report Type: Spontaneous
  Country: US (occurrence: US)
  Receive Date: 20140103
  Receipt Date: 20140313
  Transmission Date: 20141002
  Serious: Yes (Congenital Anomaly, Other)
  Sender: FDA-Public Use
  Company Number: US-PFIZER INC-2013374639

PATIENT
  Age: 2 Day
  Sex: Male

DRUGS (5)
  1. ZOLOFT [Suspect]
     Indication: DEPRESSION
     Dosage: UNK
     Route: 064
     Dates: start: 2005, end: 2009
  2. SERTRALINE HCL [Suspect]
     Indication: DEPRESSION
     Dosage: UNK
     Route: 064
     Dates: start: 2005, end: 2009
  3. PRENATAL VITAMINS [Concomitant]
     Dosage: UNK
     Route: 064
  4. IBUPROFEN [Concomitant]
     Dosage: UNK
     Route: 064
  5. IRON SULFATE [Concomitant]
     Dosage: UNK
     Route: 064

REACTIONS (4)
  - Maternal exposure during pregnancy [Unknown]
  - Spina bifida [Unknown]
  - Skin malformation [Unknown]
  - Tethered cord syndrome [Unknown]
